FAERS Safety Report 4286989-2 (Version None)
Quarter: 2004Q1

REPORT INFORMATION
  Report Type: 
  Country: None (occurrence: None)
  Receive Date: 20040204
  Receipt Date: 20040120
  Transmission Date: 20041129
  Serious: Yes (Hospitalization)
  Sender: FDA-Public Use
  Company Number: 220001M04CAN

PATIENT
  Age: 5 Year
  Sex: Male
  Weight: 15 kg

DRUGS (2)
  1. SAIZEN [Suspect]
     Indication: GROWTH HORMONE DEFICIENCY
     Dosage: 0.8 NOT REPORTED, 6 IN 1 WEEKS, SUBCUTANEOUS
     Route: 058
     Dates: start: 19991125, end: 20031008
  2. DESMOPRESSIN ACETATE [Concomitant]

REACTIONS (1)
  - FOCAL NODULAR HYPERPLASIA [None]
